FAERS Safety Report 6998385-5 (Version None)
Quarter: 2010Q3

REPORT INFORMATION
  Report Type: 
  Country: None (occurrence: None)
  Receive Date: 20100920
  Receipt Date: 20100908
  Transmission Date: 20110219
  Serious: Yes (Hospitalization)
  Sender: FDA-Public Use
  Company Number: US-JNJFOC-20100904151

PATIENT
  Age: 67 Year
  Sex: Female
  Weight: 87.54 kg

DRUGS (6)
  1. TYLENOL (CAPLET) [Suspect]
     Route: 048
  2. TYLENOL (CAPLET) [Suspect]
     Indication: ARTHRITIS
     Route: 048
  3. TRAMADOL [Concomitant]
     Indication: ARTHRITIS
     Route: 065
  4. COUMADIN [Concomitant]
     Indication: THROMBOSIS
     Dosage: ALTERNATING 2.5 MG AND 5 MG, 1 PILL ONCE DAILY
     Route: 065
  5. ALBUTEROL [Concomitant]
     Indication: ASTHMA
     Route: 065
  6. LISINOPRIL [Concomitant]
     Indication: HYPERTENSION
     Route: 065

REACTIONS (6)
  - ABDOMINAL PAIN UPPER [None]
  - DECREASED APPETITE [None]
  - DIARRHOEA [None]
  - NAUSEA [None]
  - PRODUCT QUALITY ISSUE [None]
  - VOMITING [None]
